FAERS Safety Report 25178877 (Version 1)
Quarter: 2025Q2

REPORT INFORMATION
  Report Type: Spontaneous
  Country: US (occurrence: US)
  Receive Date: 20250409
  Receipt Date: 20250409
  Transmission Date: 20250716
  Serious: No
  Sender: SANOFI AVENTIS
  Company Number: US-SA-2025SA100836

PATIENT
  Sex: Male

DRUGS (2)
  1. ELOCTATE [Suspect]
     Active Substance: EFMOROCTOCOG ALFA
  2. ELOCTATE [Suspect]
     Active Substance: EFMOROCTOCOG ALFA

REACTIONS (2)
  - Speech disorder [Recovered/Resolved]
  - Headache [Recovered/Resolved]
